FAERS Safety Report 5524261-0 (Version None)
Quarter: 2007Q4

REPORT INFORMATION
  Report Type: 
  Country: None (occurrence: None)
  Receive Date: 20071121
  Receipt Date: 20071113
  Transmission Date: 20080405
  Serious: Yes (Hospitalization)
  Sender: FDA-Public Use
  Company Number: US-PFIZER INC-2007095064

PATIENT
  Sex: Male
  Weight: 76.7 kg

DRUGS (14)
  1. SUTENT [Suspect]
     Indication: COLORECTAL CANCER METASTATIC
     Route: 048
  2. OXALIPLATIN [Suspect]
     Route: 042
  3. LEUCOVORIN CALCIUM [Suspect]
     Indication: COLORECTAL CANCER METASTATIC
     Route: 042
  4. FLUOROURACIL [Suspect]
     Indication: COLORECTAL CANCER METASTATIC
     Route: 042
     Dates: start: 20071003, end: 20071017
  5. FLUOROURACIL [Suspect]
     Route: 042
  6. REGLAN [Concomitant]
     Indication: NAUSEA
     Route: 048
  7. REGLAN [Concomitant]
     Indication: VOMITING
  8. COMPAZINE [Concomitant]
     Indication: NAUSEA
     Route: 048
     Dates: start: 20071017
  9. COMPAZINE [Concomitant]
     Indication: VOMITING
  10. LACTULOSE [Concomitant]
     Indication: CONSTIPATION
     Route: 048
     Dates: start: 20071017
  11. OXYCONTIN [Concomitant]
     Indication: PAIN
     Route: 048
     Dates: start: 20071017
  12. SENNA [Concomitant]
     Indication: CONSTIPATION
     Dosage: TEXT:2 TABS-FREQ:QHS
     Route: 048
     Dates: start: 20071017
  13. COLACE [Concomitant]
     Indication: CONSTIPATION
     Route: 048
     Dates: start: 20071017
  14. OXYCODONE HCL [Concomitant]
     Indication: PAIN
     Route: 048
     Dates: start: 20071003

REACTIONS (2)
  - NEUTROPENIA [None]
  - SEPSIS [None]
